FAERS Safety Report 6382073-2 (Version None)
Quarter: 2009Q3

REPORT INFORMATION
  Report Type: 
  Country: None (occurrence: None)
  Receive Date: 20090930
  Receipt Date: 20090925
  Transmission Date: 20100115
  Serious: Yes (Other)
  Sender: FDA-Public Use
  Company Number: FR-BRISTOL-MYERS SQUIBB COMPANY-14794655

PATIENT
  Age: 70 Year
  Sex: Female

DRUGS (10)
  1. ORENCIA [Suspect]
     Indication: RHEUMATOID ARTHRITIS
     Dosage: 7 INF
     Route: 042
     Dates: start: 20090410, end: 20090101
  2. ATENOLOL [Concomitant]
  3. PLAVIX [Concomitant]
  4. TEMESTA [Concomitant]
  5. ACTONEL [Concomitant]
  6. CACIT D3 [Concomitant]
  7. CORTANCYL [Concomitant]
  8. METHOTREXATE [Concomitant]
  9. SPECIAFOLDINE [Concomitant]
  10. OMEPRAZOLE [Concomitant]

REACTIONS (1)
  - SKIN ULCER [None]
